FAERS Safety Report 25641453 (Version 1)
Quarter: 2025Q3

REPORT INFORMATION
  Report Type: Spontaneous
  Country: US (occurrence: None)
  Receive Date: 20250804
  Receipt Date: 20250804
  Transmission Date: 20251021
  Serious: Yes (Other)
  Sender: FDA-CTU
  Company Number: None

PATIENT
  Age: 54 Year
  Sex: Female
  Weight: 82.55 kg

DRUGS (10)
  1. CORTICOTROPIN [Suspect]
     Active Substance: CORTICOTROPIN
     Indication: Multiple sclerosis
     Dosage: ?80 IU DAILY SUBCUTANEOUS
     Route: 058
  2. ALENDRONATE SODIUM [Concomitant]
     Active Substance: ALENDRONATE SODIUM
  3. Transfer Factor [Concomitant]
  4. OXYBUTYNIN CHLORIDE [Concomitant]
     Active Substance: OXYBUTYNIN CHLORIDE
  5. VITAMIN D3 [Concomitant]
     Active Substance: CHOLECALCIFEROL
  6. BACLOFEN [Concomitant]
     Active Substance: BACLOFEN
  7. GABAPENTIN [Concomitant]
     Active Substance: GABAPENTIN
  8. CYCLOBENZAPRINE [Concomitant]
     Active Substance: CYCLOBENZAPRINE
  9. VERAPAMIL HCL [Concomitant]
     Active Substance: VERAPAMIL HYDROCHLORIDE
  10. LOSARTAN POTASSIUM [Concomitant]
     Active Substance: LOSARTAN POTASSIUM

REACTIONS (10)
  - Temperature intolerance [None]
  - Muscle spasticity [None]
  - Back pain [None]
  - Pain in extremity [None]
  - Abdominal pain [None]
  - Erythema [None]
  - Myalgia [None]
  - Muscle spasms [None]
  - Hypoaesthesia [None]
  - Multiple sclerosis relapse [None]

NARRATIVE: CASE EVENT DATE: 20250804
